FAERS Safety Report 10257176 (Version 12)
Quarter: 2014Q4

REPORT INFORMATION
  Report Type: Report from Study
  Country: US (occurrence: US)
  Receive Date: 20140625
  Receipt Date: 20141106
  Transmission Date: 20150528
  Serious: Yes (Life-Threatening, Hospitalization, Other)
  Sender: FDA-Public Use
  Company Number: US-ALEXION PHARMACEUTICALS INC.-A201402421

PATIENT

DRUGS (1)
  1. SOLIRIS [Suspect]
     Active Substance: ECULIZUMAB
     Indication: HAEMOLYTIC URAEMIC SYNDROME
     Dosage: 1200 MG, Q2W
     Route: 042
     Dates: start: 20140523

REACTIONS (17)
  - Cardiac failure congestive [Not Recovered/Not Resolved]
  - Fatigue [Recovering/Resolving]
  - Haemoglobin decreased [Unknown]
  - Ejection fraction decreased [Unknown]
  - Dyspnoea [Recovering/Resolving]
  - Fall [Unknown]
  - Arrhythmia [Not Recovered/Not Resolved]
  - Fall [Unknown]
  - Vomiting [Unknown]
  - Tachycardia [Unknown]
  - Blood creatinine increased [Unknown]
  - Pneumonia fungal [Not Recovered/Not Resolved]
  - Cardiac arrest [Not Recovered/Not Resolved]
  - Platelet count decreased [Unknown]
  - Respiratory distress [Not Recovered/Not Resolved]
  - Fluid overload [Recovering/Resolving]
  - Pain [Unknown]

NARRATIVE: CASE EVENT DATE: 20140612
